FAERS Safety Report 13378417 (Version 1)
Quarter: 2017Q1

REPORT INFORMATION
  Report Type: Spontaneous
  Country: US (occurrence: US)
  Receive Date: 20170328
  Receipt Date: 20170328
  Transmission Date: 20170429
  Serious: No
  Sender: FDA-Public Use
  Company Number: US-ROCHE-1078182

PATIENT
  Age: 12 Year
  Sex: Female
  Weight: 48.58 kg

DRUGS (6)
  1. SYMBICORT [Concomitant]
     Active Substance: BUDESONIDE\FORMOTEROL FUMARATE DIHYDRATE
     Indication: ASTHMA
     Route: 065
     Dates: start: 20120113
  2. FLUTICASONE. [Concomitant]
     Active Substance: FLUTICASONE
     Route: 045
     Dates: start: 20100113
  3. SINGULAIR [Concomitant]
     Active Substance: MONTELUKAST SODIUM
     Indication: ASTHMA
     Route: 048
     Dates: start: 20100113
  4. ZYRTEC [Concomitant]
     Active Substance: CETIRIZINE HYDROCHLORIDE
     Route: 048
     Dates: start: 20100113
  5. PREDNISONE. [Concomitant]
     Active Substance: PREDNISONE
     Indication: ASTHMA
     Route: 048
  6. XOLAIR [Suspect]
     Active Substance: OMALIZUMAB
     Indication: ASTHMA
     Route: 065

REACTIONS (8)
  - Headache [Recovered/Resolved]
  - Oropharyngeal pain [Unknown]
  - Fatigue [Unknown]
  - Fatigue [Recovered/Resolved]
  - Influenza like illness [Unknown]
  - Pharyngeal erythema [Unknown]
  - Oropharyngeal pain [Recovered/Resolved]
  - Headache [Recovered/Resolved]

NARRATIVE: CASE EVENT DATE: 20120509
